FAERS Safety Report 19190931 (Version 1)
Quarter: 2021Q2

REPORT INFORMATION
  Report Type: Spontaneous
  Country: KZ (occurrence: KZ)
  Receive Date: 20210428
  Receipt Date: 20210428
  Transmission Date: 20210717
  Serious: Yes (Hospitalization)
  Sender: FDA-Public Use
  Company Number: KZ-ELI_LILLY_AND_COMPANY-KZ202103009712

PATIENT
  Age: 68 Year
  Sex: Male

DRUGS (6)
  1. CYRAMZA [Suspect]
     Active Substance: RAMUCIRUMAB
     Dosage: 460 MG, CYCLICAL
     Route: 042
     Dates: start: 20210311, end: 20210319
  2. CYRAMZA [Suspect]
     Active Substance: RAMUCIRUMAB
     Dosage: 464 MG, CYCLICAL
     Route: 042
  3. PACLITAXEL. [Concomitant]
     Active Substance: PACLITAXEL
     Dosage: 130 MG, CYCLICAL
     Route: 065
     Dates: start: 20210219, end: 20210219
  4. CYRAMZA [Suspect]
     Active Substance: RAMUCIRUMAB
     Indication: GASTRIC CANCER
     Dosage: 480 MG, CYCLICAL
     Route: 042
     Dates: start: 20210125, end: 20210201
  5. PACLITAXEL. [Concomitant]
     Active Substance: PACLITAXEL
     Indication: GASTRIC CANCER
     Dosage: 300 MG, CYCLICAL
     Route: 065
     Dates: start: 20210125, end: 20210201
  6. PACLITAXEL. [Concomitant]
     Active Substance: PACLITAXEL
     Dosage: 120 MG, CYCLICAL
     Route: 065
     Dates: start: 20210311, end: 20210319

REACTIONS (9)
  - Malnutrition [Unknown]
  - Constipation [Unknown]
  - Pallor [Unknown]
  - Ascites [Unknown]
  - Cachexia [Unknown]
  - Abdominal pain upper [Unknown]
  - Oedema peripheral [Unknown]
  - Hypotension [Unknown]
  - Thrombocytopenia [Unknown]

NARRATIVE: CASE EVENT DATE: 20210408
